FAERS Safety Report 17193225 (Version 1)
Quarter: 2019Q4

REPORT INFORMATION
  Report Type: Spontaneous
  Country: CN (occurrence: CN)
  Receive Date: 20191223
  Receipt Date: 20191223
  Transmission Date: 20200122
  Serious: Yes (Other)
  Sender: FDA-Public Use
  Company Number: CN-ELI_LILLY_AND_COMPANY-CN201912007533

PATIENT
  Age: 53 Year
  Sex: Male
  Weight: 93 kg

DRUGS (1)
  1. CIALIS [Suspect]
     Active Substance: TADALAFIL
     Indication: ERECTILE DYSFUNCTION
     Dosage: 1 DOSAGE FORM, DAILY
     Route: 048
     Dates: start: 20191101, end: 20191128

REACTIONS (2)
  - Brain oedema [Unknown]
  - Drug ineffective [Unknown]
